FAERS Safety Report 11801269 (Version 3)
Quarter: 2016Q1

REPORT INFORMATION
  Report Type: Spontaneous
  Country: US (occurrence: US)
  Receive Date: 20151204
  Receipt Date: 20160114
  Transmission Date: 20160525
  Serious: Yes (Hospitalization, Other)
  Sender: FDA-Public Use
  Company Number: US-PFIZER INC-2015426262

PATIENT
  Age: 69 Year
  Sex: Female

DRUGS (2)
  1. ADVIL [Suspect]
     Active Substance: IBUPROFEN
     Indication: PAIN
     Dosage: UNK, 2X/DAY
  2. ADVIL [Suspect]
     Active Substance: IBUPROFEN
     Indication: TOOTHACHE
     Dosage: UNK

REACTIONS (3)
  - Product quality issue [Recovered/Resolved]
  - Burn oral cavity [Recovered/Resolved]
  - Dry mouth [Recovered/Resolved]
